FAERS Safety Report 25532992 (Version 2)
Quarter: 2025Q4

REPORT INFORMATION
  Report Type: Report from Study
  Country: US (occurrence: US)
  Receive Date: 20250709
  Receipt Date: 20251208
  Transmission Date: 20260117
  Serious: No
  Sender: SANDOZ
  Company Number: US-SANDOZ-SDZ2025US024615

PATIENT
  Age: 17 Year
  Sex: Male

DRUGS (4)
  1. OMNITROPE [Suspect]
     Active Substance: SOMATROPIN
     Indication: Short stature
     Dosage: 2.3 MG, QD (OMNITROPE 10 MG / 1.5 ML SOLUTION FOR INJECTION)
     Route: 058
  2. OMNITROPE [Suspect]
     Active Substance: SOMATROPIN
     Indication: Short stature
     Dosage: 2.3 MG, QD (OMNITROPE 10 MG / 1.5 ML SOLUTION FOR INJECTION)
     Route: 058
  3. OMNITROPE [Suspect]
     Active Substance: SOMATROPIN
     Dosage: 2.3 MG, QD
     Route: 058
     Dates: start: 20250416
  4. OMNITROPE [Suspect]
     Active Substance: SOMATROPIN
     Dosage: 2.3 MG, QD
     Route: 058
     Dates: start: 20250416

REACTIONS (2)
  - Injection site pain [Not Recovered/Not Resolved]
  - Product storage error [Unknown]

NARRATIVE: CASE EVENT DATE: 20250702
